FAERS Safety Report 19674562 (Version 2)
Quarter: 2024Q3

REPORT INFORMATION
  Report Type: Spontaneous
  Country: US (occurrence: US)
  Receive Date: 20210809
  Receipt Date: 20240830
  Transmission Date: 20241017
  Serious: Yes (Hospitalization, Other)
  Sender: NOVO NORDISK
  Company Number: US-NOVOPROD-835475

PATIENT
  Age: 65 Year
  Sex: Male

DRUGS (1)
  1. NOVOLIN 70/30 [Suspect]
     Active Substance: INSULIN HUMAN
     Indication: Product used for unknown indication
     Dosage: 20 IU, QD
     Route: 058

REACTIONS (6)
  - Neoplasm malignant [Not Recovered/Not Resolved]
  - Cerebrovascular accident [Unknown]
  - Localised infection [Unknown]
  - Staphylococcal infection [Unknown]
  - Head injury [Unknown]
  - Visual impairment [Unknown]

NARRATIVE: CASE EVENT DATE: 20200101
